FAERS Safety Report 13380502 (Version 1)
Quarter: 2017Q1

REPORT INFORMATION
  Report Type: Spontaneous
  Country: FR (occurrence: FR)
  Receive Date: 20170329
  Receipt Date: 20170329
  Transmission Date: 20170429
  Serious: Yes (Hospitalization)
  Sender: FDA-Public Use
  Company Number: FR-ASTRAZENECA-2017SE31468

PATIENT
  Age: 29770 Day
  Sex: Female

DRUGS (5)
  1. ALPRAZOLAM. [Suspect]
     Active Substance: ALPRAZOLAM
     Indication: INSOMNIA
     Dosage: 0.5MG UNKNOWN
     Route: 065
     Dates: end: 20170301
  2. STRESAM [Suspect]
     Active Substance: ETIFOXINE
     Route: 065
     Dates: start: 20170214
  3. CEFPODOXIME [Suspect]
     Active Substance: CEFPODOXIME
     Indication: CHRONIC SINUSITIS
     Route: 065
     Dates: start: 20170214, end: 20170219
  4. PULMICORT TURBUHALER [Suspect]
     Active Substance: BUDESONIDE
     Indication: CHRONIC SINUSITIS
     Dosage: 2 BREATHES IN THE MORNING AND THE EVENING
     Route: 055
     Dates: start: 20170214, end: 20170225
  5. LEVOTHYROX [Concomitant]
     Active Substance: LEVOTHYROXINE

REACTIONS (10)
  - Drug reaction with eosinophilia and systemic symptoms [Unknown]
  - Product use issue [Recovered/Resolved]
  - Rash maculo-papular [Recovering/Resolving]
  - Off label use [Recovered/Resolved]
  - Acute generalised exanthematous pustulosis [Unknown]
  - Sleep disorder due to general medical condition, insomnia type [Unknown]
  - Pruritus [Recovering/Resolving]
  - Drug eruption [Unknown]
  - Drug ineffective [Unknown]
  - Eosinophilia [Unknown]

NARRATIVE: CASE EVENT DATE: 20170214
